FAERS Safety Report 20756652 (Version 1)
Quarter: 2022Q2

REPORT INFORMATION
  Report Type: Spontaneous
  Country: US (occurrence: None)
  Receive Date: 20220426
  Receipt Date: 20220426
  Transmission Date: 20220721
  Serious: Yes (Hospitalization)
  Sender: FDA-Public Use
  Company Number: None

PATIENT
  Age: 72 Year
  Sex: Female

DRUGS (1)
  1. XARELTO [Suspect]
     Active Substance: RIVAROXABAN
     Indication: Embolism
     Dosage: FREQUENCY : DAILY;?
     Route: 048
     Dates: start: 20121203

REACTIONS (3)
  - Cerebrovascular accident [None]
  - Headache [None]
  - Neuralgia [None]

NARRATIVE: CASE EVENT DATE: 20220404
